FAERS Safety Report 22323334 (Version 3)
Quarter: 2023Q2

REPORT INFORMATION
  Report Type: Spontaneous
  Country: US (occurrence: US)
  Receive Date: 20230516
  Receipt Date: 20230522
  Transmission Date: 20230722
  Serious: Yes (Life-Threatening, Hospitalization, Disabling, Other)
  Sender: FDA-Public Use
  Company Number: US-STRIDES ARCOLAB LIMITED-2023SP006960

PATIENT
  Sex: Female

DRUGS (1)
  1. MINOCYCLINE [Suspect]
     Active Substance: MINOCYCLINE HYDROCHLORIDE
     Indication: Confluent and reticulate papillomatosis
     Dosage: UNK
     Route: 065

REACTIONS (5)
  - Papilloedema [Not Recovered/Not Resolved]
  - Blindness [Unknown]
  - Optic atrophy [Unknown]
  - Idiopathic intracranial hypertension [Not Recovered/Not Resolved]
  - Off label use [Unknown]
